FAERS Safety Report 5693562-8 (Version None)
Quarter: 2008Q2

REPORT INFORMATION
  Report Type: 
  Country: None (occurrence: None)
  Receive Date: 20080402
  Receipt Date: 20080402
  Transmission Date: 20081010
  Serious: Yes (Other)
  Sender: FDA-Public Use
  Company Number: None

PATIENT
  Age: 13 Year
  Sex: Male
  Weight: 45.3597 kg

DRUGS (2)
  1. SINGULAIR [Suspect]
     Indication: ASTHMA EXERCISE INDUCED
     Dosage: 5 MG ONCE DAILY PO
     Route: 048
     Dates: start: 20071001, end: 20080301
  2. SINGULAIR [Suspect]
     Indication: HYPERSENSITIVITY
     Dosage: 5 MG ONCE DAILY PO
     Route: 048
     Dates: start: 20071001, end: 20080301

REACTIONS (7)
  - ABDOMINAL PAIN UPPER [None]
  - DEPRESSED LEVEL OF CONSCIOUSNESS [None]
  - DEPRESSION [None]
  - FATIGUE [None]
  - FEELING ABNORMAL [None]
  - HEADACHE [None]
  - PAIN IN EXTREMITY [None]
